FAERS Safety Report 5399747-2 (Version None)
Quarter: 2007Q3

REPORT INFORMATION
  Report Type: 
  Country: None (occurrence: None)
  Receive Date: 20070727
  Receipt Date: 20070717
  Transmission Date: 20080115
  Serious: Yes (Hospitalization)
  Sender: FDA-Public Use
  Company Number: FR-PFIZER INC-2007060559

PATIENT
  Sex: Male

DRUGS (2)
  1. ATARAX [Suspect]
     Indication: SLEEP DISORDER
     Dosage: DAILY DOSE:75MG-FREQ:DAILY
     Route: 048
     Dates: start: 20060109, end: 20061017
  2. TERCIAN [Suspect]
     Indication: SLEEP DISORDER
     Dosage: DAILY DOSE:100MG-FREQ:DAILY
     Route: 048
     Dates: start: 20060412, end: 20061017

REACTIONS (1)
  - PRIAPISM [None]
